FAERS Safety Report 4983777-6 (Version None)
Quarter: 2006Q1

REPORT INFORMATION
  Report Type: 
  Country: None (occurrence: None)
  Receive Date: 20060301
  Receipt Date: 20051228
  Transmission Date: 20060701
  Serious: No
  Sender: FDA-Public Use
  Company Number: S05-USA-05371-01

PATIENT
  Age: 82 Year
  Sex: Female

DRUGS (4)
  1. NAMENDA [Suspect]
     Indication: MEMORY IMPAIRMENT
     Dosage: 5 MG QD PO
     Route: 048
     Dates: start: 20051123, end: 20051129
  2. NAMENDA [Suspect]
     Indication: MEMORY IMPAIRMENT
     Dosage: 10 MG QD PO
     Route: 048
     Dates: start: 20051130
  3. LEVOTHYROXINE SODIUM [Concomitant]
  4. FOSAMAX [Concomitant]

REACTIONS (1)
  - DIZZINESS [None]
